FAERS Safety Report 17391314 (Version 1)
Quarter: 2020Q1

REPORT INFORMATION
  Report Type: Spontaneous
  Country: PL (occurrence: PL)
  Receive Date: 20200207
  Receipt Date: 20200207
  Transmission Date: 20200409
  Serious: Yes (Other)
  Sender: FDA-Public Use
  Company Number: PL-TEVA-2020-PL-1182424

PATIENT
  Sex: Female

DRUGS (1)
  1. CLARZOLE 2,5 MG [Suspect]
     Active Substance: LETROZOLE
     Indication: NEOPLASM
     Dosage: 2.5 MG 24 HOURS
     Route: 048
     Dates: start: 201805

REACTIONS (3)
  - Pain in extremity [Unknown]
  - Arthralgia [Unknown]
  - Tenosynovitis stenosans [Unknown]

NARRATIVE: CASE EVENT DATE: 201805
